FAERS Safety Report 8925669 (Version 1)
Quarter: 2012Q4

REPORT INFORMATION
  Report Type: 
  Country: GB (occurrence: GB)
  Receive Date: 20121126
  Receipt Date: 20121126
  Transmission Date: 20130627
  Serious: Yes (Other)
  Sender: FDA-Public Use
  Company Number: GB-PFIZER INC-2012290968

PATIENT
  Age: 5 None
  Sex: Female

DRUGS (1)
  1. LYRICA [Suspect]
     Indication: ANXIETY DISORDER

REACTIONS (1)
  - Convulsion [Unknown]
